FAERS Safety Report 21232306 (Version 1)
Quarter: 2022Q3

REPORT INFORMATION
  Report Type: Other
  Country: EG (occurrence: None)
  Receive Date: 20220819
  Receipt Date: 20220819
  Transmission Date: 20221026
  Serious: No
  Sender: FDA-Public Use
  Company Number: EG-ROCHE-3163580

PATIENT
  Age: 26 Year
  Sex: Female
  Weight: 50 kg

DRUGS (6)
  1. OCRELIZUMAB [Suspect]
     Active Substance: OCRELIZUMAB
     Indication: Primary progressive multiple sclerosis
     Route: 042
     Dates: start: 20200615
  2. SOLITRACT [Concomitant]
     Route: 048
     Dates: start: 20200220
  3. DULOXEPRIN [Concomitant]
     Route: 048
     Dates: start: 20210101
  4. FERROTRON [Concomitant]
     Route: 048
     Dates: end: 20220629
  5. FERRO-SANOL DUODENAL [Concomitant]
     Active Substance: FERROUS GLYCINE SULFATE
     Route: 048
     Dates: start: 20210101, end: 20220629
  6. DULOXETINE [Concomitant]
     Active Substance: DULOXETINE
     Route: 048
     Dates: start: 20220101

REACTIONS (1)
  - COVID-19 [Recovered/Resolved]

NARRATIVE: CASE EVENT DATE: 20220703
